FAERS Safety Report 5473223-0 (Version None)
Quarter: 2007Q4

REPORT INFORMATION
  Report Type: 
  Country: None (occurrence: None)
  Receive Date: 20071001
  Receipt Date: 20070921
  Transmission Date: 20080405
  Serious: Yes (Hospitalization)
  Sender: FDA-Public Use
  Company Number: CA-ROCHE-466840

PATIENT
  Age: 33 Year
  Sex: Female
  Weight: 74.5 kg

DRUGS (13)
  1. DACLIZUMAB [Suspect]
     Indication: MULTIPLE SCLEROSIS
     Route: 058
     Dates: start: 20060316, end: 20060802
  2. BACLOFEN [Concomitant]
     Dates: start: 20000101
  3. TRIPHASIL-28 [Concomitant]
     Dates: start: 19900101
  4. IBUPROFEN [Concomitant]
     Dates: start: 19850101
  5. ACETAMINOPHEN [Concomitant]
     Dates: start: 19850101
  6. REBIF [Concomitant]
     Dates: start: 20010807
  7. C-VITAMIN [Concomitant]
     Dates: start: 20030101
  8. KALCIUM D-VITAMIN [Concomitant]
     Dates: start: 20040101
  9. VITAMIN B COMPLEX CAP [Concomitant]
     Dates: start: 20050101
  10. MULTIVITAMIN NOS [Concomitant]
     Dosage: REPORTED AS DAILY MULTIVITAMIN
     Dates: start: 20060201
  11. COLACE [Concomitant]
     Dates: start: 20060502
  12. TOLTERODINE [Concomitant]
     Dates: start: 20060422
  13. FLONASE [Concomitant]
     Dates: start: 20060711

REACTIONS (9)
  - ADRENAL INSUFFICIENCY [None]
  - ADRENAL SUPPRESSION [None]
  - EYELID OEDEMA [None]
  - HAEMOGLOBIN DECREASED [None]
  - HYPERHIDROSIS [None]
  - HYPONATRAEMIA [None]
  - HYPOPITUITARISM [None]
  - MULTIPLE SCLEROSIS RELAPSE [None]
  - WHITE BLOOD CELL COUNT DECREASED [None]
